FAERS Safety Report 17600060 (Version 1)
Quarter: 2020Q1

REPORT INFORMATION
  Report Type: Spontaneous
  Country: JP (occurrence: JP)
  Receive Date: 20200330
  Receipt Date: 20200330
  Transmission Date: 20200409
  Serious: Yes (Death, Hospitalization)
  Sender: FDA-Public Use
  Company Number: JP-CELGENEUS-JPN-20190808789

PATIENT
  Age: 73 Year
  Sex: Male
  Weight: 50 kg

DRUGS (29)
  1. MAGNESIUM OXIDE. [Concomitant]
     Active Substance: MAGNESIUM OXIDE
     Indication: CONSTIPATION
     Route: 065
     Dates: start: 20190618
  2. LEVOFLOXACIN HEMIHYDRATE [Concomitant]
     Active Substance: LEVOFLOXACIN
     Indication: INFECTION PROPHYLAXIS
     Route: 065
     Dates: start: 20190619, end: 20190816
  3. CHLORPHENIRAMINE MALEATE. [Concomitant]
     Active Substance: CHLORPHENIRAMINE MALEATE
     Indication: ALLERGY PROPHYLAXIS
     Route: 065
     Dates: start: 20200118, end: 20200210
  4. HEPARINOID [Concomitant]
     Active Substance: CHONDROITIN SULFATE (BOVINE)
     Indication: DRY SKIN
     Route: 065
     Dates: start: 20200107, end: 20200210
  5. DIGOXIN. [Concomitant]
     Active Substance: DIGOXIN
     Indication: MULTIPLE ORGAN DYSFUNCTION SYNDROME
     Route: 065
     Dates: start: 20200208, end: 20200208
  6. PANTETHINE [Concomitant]
     Active Substance: PANTETHINE
     Indication: CONSTIPATION
     Route: 065
     Dates: start: 20190618
  7. SENNOSIDE [Concomitant]
     Active Substance: SENNOSIDES
     Indication: CONSTIPATION
     Route: 065
     Dates: start: 20190622
  8. TEICOPLANIN [Concomitant]
     Active Substance: TEICOPLANIN
     Indication: ANAL ABSCESS
     Route: 065
     Dates: start: 20200117, end: 20200210
  9. MEROPENEM HYDRATE [Concomitant]
     Active Substance: MEROPENEM
     Indication: INFECTION PROPHYLAXIS
     Route: 065
     Dates: start: 20200114, end: 20200210
  10. ACARBOSE. [Concomitant]
     Active Substance: ACARBOSE
     Indication: DIABETES MELLITUS
     Route: 065
     Dates: start: 2004
  11. HYDROCORTISONE SODIUM SUCCINATE [Concomitant]
     Active Substance: HYDROCORTISONE SODIUM SUCCINATE
     Indication: TUMOUR ASSOCIATED FEVER
     Route: 065
     Dates: start: 20200115, end: 20200206
  12. CASPOFUNGIN ACETATE. [Concomitant]
     Active Substance: CASPOFUNGIN ACETATE
     Indication: INFECTION PROPHYLAXIS
     Route: 065
     Dates: start: 20200203, end: 20200210
  13. ATOVAQUONE. [Concomitant]
     Active Substance: ATOVAQUONE
     Indication: INFECTION PROPHYLAXIS
     Route: 065
     Dates: start: 20190813, end: 20200210
  14. VORICONAZOLE. [Concomitant]
     Active Substance: VORICONAZOLE
     Indication: INFECTION PROPHYLAXIS
     Route: 065
     Dates: start: 20191008, end: 20200210
  15. NAPROXEN. [Concomitant]
     Active Substance: NAPROXEN
     Indication: ANAL ABSCESS
     Route: 065
     Dates: start: 20200205, end: 20200210
  16. HYDROCORTISONE. [Concomitant]
     Active Substance: HYDROCORTISONE
     Indication: ANAL ABSCESS
     Route: 065
     Dates: start: 20191213, end: 20200210
  17. LANDIOLOL HYDROCHLORIDE [Concomitant]
     Active Substance: LANDIOLOL HYDROCHLORIDE
     Indication: MULTIPLE ORGAN DYSFUNCTION SYNDROME
     Route: 065
     Dates: start: 20200209, end: 20200209
  18. PF-04449913 [Suspect]
     Active Substance: GLASDEGIB
     Indication: ACUTE MYELOID LEUKAEMIA
     Dosage: 100 MILLIGRAM
     Route: 048
     Dates: start: 20190618, end: 20200209
  19. ESOMEPRAZOLE MAGNESIUM HYDRATE [Concomitant]
     Active Substance: ESOMEPRAZOLE MAGNESIUM
     Indication: GASTRITIS PROPHYLAXIS
     Route: 065
     Dates: start: 20190618, end: 20200210
  20. AMLODIPINE BESILATE [Concomitant]
     Active Substance: AMLODIPINE BESYLATE
     Indication: HYPERTENSION
     Route: 065
     Dates: start: 20190619
  21. ETHYL ICOSAPENTATE [Concomitant]
     Active Substance: ICOSAPENT ETHYL
     Indication: DYSLIPIDAEMIA
     Route: 065
     Dates: start: 1966, end: 20200210
  22. LINAGLIPTIN [Concomitant]
     Active Substance: LINAGLIPTIN
     Indication: DIABETES MELLITUS
     Route: 065
     Dates: start: 20190907, end: 20200210
  23. ACETAMINOPHEN. [Concomitant]
     Active Substance: ACETAMINOPHEN
     Indication: TUMOUR ASSOCIATED FEVER
     Route: 065
     Dates: start: 20200114, end: 20200207
  24. MORPHINE SULFATE. [Concomitant]
     Active Substance: MORPHINE SULFATE
     Indication: ANAL ABSCESS
     Route: 065
     Dates: start: 20200114, end: 20200210
  25. VIDAZA [Suspect]
     Active Substance: AZACITIDINE
     Indication: ACUTE MYELOID LEUKAEMIA
     Dosage: 112.1 MILLIGRAM/SQ. METER
     Route: 058
     Dates: start: 20190618, end: 20200122
  26. INSULIN GLARGINE [Concomitant]
     Active Substance: INSULIN GLARGINE
     Indication: DIABETES MELLITUS
     Route: 065
     Dates: start: 20190617
  27. LACTATED RINGERS SOLUTION [Concomitant]
     Active Substance: CALCIUM CHLORIDE\POTASSIUM CHLORIDE\SODIUM CHLORIDE\SODIUM LACTATE
     Indication: MULTIPLE ORGAN DYSFUNCTION SYNDROME
     Route: 065
     Dates: start: 20200208, end: 20200208
  28. METFORMIN HYDROCHLORIDE. [Concomitant]
     Active Substance: METFORMIN HYDROCHLORIDE
     Indication: DIABETES MELLITUS
     Route: 065
     Dates: start: 2004, end: 20200210
  29. FUROSEMIDE. [Concomitant]
     Active Substance: FUROSEMIDE
     Indication: OEDEMA PERIPHERAL
     Route: 065
     Dates: start: 20200206, end: 20200210

REACTIONS (2)
  - Acute myeloid leukaemia [Fatal]
  - Febrile neutropenia [Recovered/Resolved]

NARRATIVE: CASE EVENT DATE: 20190815
